FAERS Safety Report 23839706 (Version 2)
Quarter: 2025Q1

REPORT INFORMATION
  Report Type: Report from Study
  Country: US (occurrence: US)
  Receive Date: 20240510
  Receipt Date: 20250122
  Transmission Date: 20250408
  Serious: Yes (Other)
  Sender: TAKEDA
  Company Number: US-TAKEDA-2021TUS057418

PATIENT
  Sex: Female

DRUGS (3)
  1. HUMAN IMMUNOGLOBULIN G [Suspect]
     Active Substance: HUMAN IMMUNOGLOBULIN G
     Indication: Selective IgG subclass deficiency
  2. CUVITRU [Suspect]
     Active Substance: HUMAN IMMUNOGLOBULIN G
     Indication: Primary immunodeficiency syndrome
  3. CUVITRU [Suspect]
     Active Substance: HUMAN IMMUNOGLOBULIN G
     Indication: Selective IgG subclass deficiency
     Dosage: 10 GRAM, 1/WEEK

REACTIONS (15)
  - Systemic lupus erythematosus [Unknown]
  - Depression [Unknown]
  - Irritable bowel syndrome [Unknown]
  - Abdominal discomfort [Unknown]
  - Back pain [Unknown]
  - Fatigue [Unknown]
  - Contusion [Unknown]
  - Infusion site pain [Unknown]
  - Gastrointestinal disorder [Recovering/Resolving]
  - Pyrexia [Unknown]
  - Headache [Unknown]
  - Feeling abnormal [Unknown]
  - Gastroenteritis viral [Unknown]
  - Infusion site discharge [Unknown]
  - Weight increased [Unknown]
